FAERS Safety Report 25832563 (Version 1)
Quarter: 2025Q3

REPORT INFORMATION
  Report Type: Spontaneous
  Country: US (occurrence: US)
  Receive Date: 20250922
  Receipt Date: 20250922
  Transmission Date: 20251020
  Serious: Yes (Other)
  Sender: ALEXION PHARMACEUTICALS
  Company Number: US-AstraZeneca-CH-00761636AP

PATIENT
  Age: 75 Year
  Sex: Female
  Weight: 78.912 kg

DRUGS (8)
  1. BREZTRI [Suspect]
     Active Substance: BUDESONIDE\FORMOTEROL\GLYCOPYRROLATE
  2. BREZTRI [Suspect]
     Active Substance: BUDESONIDE\FORMOTEROL\GLYCOPYRROLATE
     Dosage: 160 MICROGRAM, BID
  3. BREZTRI [Suspect]
     Active Substance: BUDESONIDE\FORMOTEROL\GLYCOPYRROLATE
     Dosage: 160 MICROGRAM, BID
  4. ROSUVASTATIN [Concomitant]
     Active Substance: ROSUVASTATIN
  5. LOSARTAN [Concomitant]
     Active Substance: LOSARTAN
  6. LEVOTHYROXINE [Concomitant]
     Active Substance: LEVOTHYROXINE
  7. HYDROCHLOROTHIAZIDE [Concomitant]
     Active Substance: HYDROCHLOROTHIAZIDE
  8. PROGESTERONE [Concomitant]
     Active Substance: PROGESTERONE

REACTIONS (41)
  - Off label use [Unknown]
  - Intentional dose omission [Unknown]
  - Intentional product use issue [Unknown]
  - Product label issue [Unknown]
  - Device delivery system issue [Unknown]
  - Wrong technique in product usage process [Unknown]
  - Device malfunction [Unknown]
  - Product use issue [Unknown]
  - Product dose omission issue [Unknown]
  - Wrong technique in device usage process [Unknown]
  - Drug effect less than expected [Unknown]
  - Nasopharyngitis [Unknown]
  - Frustration tolerance decreased [Unknown]
  - Exercise tolerance decreased [Unknown]
  - Dyspnoea exertional [Unknown]
  - Sinus disorder [Unknown]
  - Wheezing [Unknown]
  - Pneumonia [Unknown]
  - Hypoxia [Unknown]
  - Pulmonary mass [Unknown]
  - Aortic arteriosclerosis [Unknown]
  - Sleep apnoea syndrome [Unknown]
  - Atelectasis [Unknown]
  - Haemoptysis [Unknown]
  - Dry eye [Unknown]
  - Sinusitis [Unknown]
  - Bronchial disorder [Unknown]
  - Oropharyngeal pain [Unknown]
  - Inappropriate schedule of product administration [Unknown]
  - Nodule [Unknown]
  - Bronchiectasis [Unknown]
  - Pulmonary fibrosis [Unknown]
  - Vital capacity decreased [Unknown]
  - Nasal congestion [Unknown]
  - Nasal ulcer [Unknown]
  - Rhinorrhoea [Unknown]
  - Gastrooesophageal reflux disease [Unknown]
  - Abdominal distension [Unknown]
  - Diarrhoea [Unknown]
  - Essential hypertension [Unknown]
  - Obesity [Unknown]
